FAERS Safety Report 4448917-6 (Version None)
Quarter: 2004Q3

REPORT INFORMATION
  Report Type: 
  Country: None (occurrence: None)
  Receive Date: 20040909
  Receipt Date: 20040826
  Transmission Date: 20050211
  Serious: Yes (Hospitalization)
  Sender: FDA-Public Use
  Company Number: 2004205472US

PATIENT
  Age: 63 Year
  Sex: Female
  Weight: 87.1 kg

DRUGS (7)
  1. EXEMESTANE [Suspect]
     Indication: BREAST CANCER
     Dosage: 25 MG, QD
     Dates: start: 20030510, end: 20040324
  2. ATENOLOL [Concomitant]
  3. SYNTHROID [Concomitant]
  4. ROFECOXIB [Concomitant]
  5. FOSAMAX [Concomitant]
  6. VITAMINS NOS (VITAMINS NOS) [Concomitant]
  7. CALCIUM [Concomitant]

REACTIONS (6)
  - ATRIAL FIBRILLATION [None]
  - ATRIAL THROMBOSIS [None]
  - CARDIAC FAILURE CONGESTIVE [None]
  - LYMPHADENOPATHY MEDIASTINAL [None]
  - PNEUMONIA [None]
  - WHITE BLOOD CELL COUNT INCREASED [None]
